FAERS Safety Report 24446802 (Version 4)
Quarter: 2025Q2

REPORT INFORMATION
  Report Type: Report from Study
  Country: US (occurrence: US)
  Receive Date: 20241016
  Receipt Date: 20250620
  Transmission Date: 20250716
  Serious: Yes (Other)
  Sender: SUNOVION
  Company Number: US-SUMITOMO PHARMA SWITZERLAND GMBH-2024SPA003630

PATIENT

DRUGS (3)
  1. ORGOVYX [Suspect]
     Active Substance: RELUGOLIX
     Indication: Prostate cancer
     Dosage: 360 MG, SINGLE
     Route: 048
  2. ORGOVYX [Suspect]
     Active Substance: RELUGOLIX
     Dosage: 120 MG, QD
     Route: 048
     Dates: start: 20241003
  3. DECADRON [Suspect]
     Active Substance: DEXAMETHASONE
     Route: 065

REACTIONS (7)
  - Diabetes mellitus [Unknown]
  - Hernia [Unknown]
  - Gait disturbance [Unknown]
  - Peripheral swelling [Unknown]
  - Dizziness [Unknown]
  - Rash [Unknown]
  - Anaemia [Unknown]
